FAERS Safety Report 8516647-7 (Version None)
Quarter: 2012Q3

REPORT INFORMATION
  Report Type: 
  Country: None (occurrence: None)
  Receive Date: 20120718
  Receipt Date: 20120712
  Transmission Date: 20120928
  Serious: Yes (Hospitalization)
  Sender: FDA-Public Use
  Company Number: NL-US-EMD SERONO, INC.-7147477

PATIENT
  Sex: Female
  Weight: 100 kg

DRUGS (20)
  1. AMTRIPTYLINE (AMITRIPTYLINE) [Concomitant]
     Indication: NEURALGIA
     Route: 048
  2. METOCLOPRAMIDE [Concomitant]
     Indication: NAUSEA
     Route: 048
  3. PLANTAGO OVATA [Concomitant]
     Indication: CONSTIPATION
     Route: 048
  4. IRON-DEXTRAN COMPLEX INJ [Concomitant]
     Indication: ANAEMIA
     Route: 030
  5. NITRAZEPAM [Concomitant]
     Indication: INSOMNIA
     Route: 048
     Dates: start: 20120601
  6. ATENOLOL [Concomitant]
     Indication: HYPERTENSION
     Route: 048
  7. HYDROCHLOROTHIAZIDE [Concomitant]
     Indication: FLUID RETENTION
     Route: 048
  8. TRAMADOL HYDROCHLORIDE AND ACETAMINOPHEN [Concomitant]
     Indication: PYREXIA
     Dosage: 37.5/325 MG
     Route: 048
     Dates: start: 20120101, end: 20120101
  9. ESOMEZOL [Concomitant]
     Indication: GASTROINTESTINAL DISORDER
     Route: 048
  10. HYDROXOCOMBALAMINE (HYDROXOCOBALAMIN) [Concomitant]
     Indication: VITAMIN B12 DEFICIENCY
     Dosage: 500 MCG/ML
     Route: 030
  11. NARATRIPTAN [Concomitant]
     Indication: MIGRAINE
     Route: 048
  12. REBIF [Suspect]
     Indication: MULTIPLE SCLEROSIS
     Route: 058
     Dates: start: 20110214, end: 20120501
  13. BACLOFEN [Concomitant]
     Indication: MUSCLE SPASMS
     Route: 048
  14. FOLIC ACID [Concomitant]
     Indication: VITAMIN B12 DEFICIENCY
     Route: 048
  15. MEBEVERINE [Concomitant]
     Indication: IRRITABLE BOWEL SYNDROME
     Route: 048
  16. MIZOLASTINE [Concomitant]
     Indication: SEASONAL ALLERGY
     Route: 048
  17. ACETAMINOPHEN W/ CODEINE [Concomitant]
     Indication: PYREXIA
     Dosage: 500/10 MG
     Route: 048
     Dates: end: 20120101
  18. ETHINYLESTRADIOL/ LEVONORGETREL (ETHINYL ESTRADIOL/LEVONORGESTREL) [Concomitant]
     Indication: CONTRACEPTION
     Dosage: 30/150 MCG
     Route: 048
  19. LOSARTAN/HYDROCHLOORTHIAZIDE [Concomitant]
     Indication: HYPERTENSION
     Dosage: 100/12.5 MG
     Route: 048
  20. SCOPOLAMINEBUTYL DRAGEE [Concomitant]
     Indication: IRRITABLE BOWEL SYNDROME
     Route: 048

REACTIONS (3)
  - PYREXIA [None]
  - INJECTION SITE REACTION [None]
  - MYOCARDIAL INFARCTION [None]
